FAERS Safety Report 9068456 (Version 1)
Quarter: 2013Q1

REPORT INFORMATION
  Report Type: Spontaneous
  Country: US (occurrence: None)
  Receive Date: 20130212
  Receipt Date: 20130212
  Transmission Date: 20140127
  Serious: Yes (Life-Threatening, Other)
  Sender: FDA-Public Use
  Company Number: None

PATIENT
  Age: 17 Year
  Sex: Female
  Weight: 77.11 kg

DRUGS (4)
  1. EFFEXOR [Suspect]
  2. ATIVAN [Concomitant]
  3. ASPIRIN [Concomitant]
  4. IMITREX [Concomitant]

REACTIONS (6)
  - Tic [None]
  - Muscle spasms [None]
  - Anger [None]
  - Migraine [None]
  - Derealisation [None]
  - Parent-child problem [None]
